FAERS Safety Report 6567743-5 (Version None)
Quarter: 2010Q1

REPORT INFORMATION
  Report Type: 
  Country: None (occurrence: None)
  Receive Date: 20100203
  Receipt Date: 20100129
  Transmission Date: 20100710
  Serious: Yes (Death, Hospitalization, Disabling)
  Sender: FDA-Public Use
  Company Number: JP-ELI_LILLY_AND_COMPANY-JP200911003301

PATIENT
  Sex: Male
  Weight: 42 kg

DRUGS (11)
  1. ALIMTA [Suspect]
     Indication: NON-SMALL CELL LUNG CANCER RECURRENT
     Dosage: 500 MG/M2, UNK
     Route: 042
     Dates: start: 20091008, end: 20091029
  2. GEMZAR [Suspect]
     Indication: NON-SMALL CELL LUNG CANCER RECURRENT
     Dosage: UNK, UNK
     Route: 042
     Dates: start: 20090428, end: 20090708
  3. GEMZAR [Suspect]
     Route: 042
     Dates: start: 20090729, end: 20090826
  4. METHYCOBAL [Concomitant]
     Route: 030
     Dates: start: 20090930
  5. PANVITAN [Concomitant]
     Route: 048
     Dates: start: 20090930, end: 20091127
  6. CARBOPLATIN [Concomitant]
     Indication: NON-SMALL CELL LUNG CANCER RECURRENT
     Route: 042
     Dates: start: 20090428, end: 20090708
  7. MUCOSOLVAN [Concomitant]
     Indication: CHRONIC OBSTRUCTIVE PULMONARY DISEASE
     Dosage: 45 MG, DAILY (1/D)
     Route: 048
     Dates: start: 20090506
  8. HOKUNALIN [Concomitant]
     Indication: CHRONIC OBSTRUCTIVE PULMONARY DISEASE
     Route: 062
     Dates: start: 20091001
  9. SPIRIVA [Concomitant]
     Indication: CHRONIC OBSTRUCTIVE PULMONARY DISEASE
     Dosage: UNK, DAILY (1/D)
     Route: 055
     Dates: start: 20091001
  10. URSO 250 [Concomitant]
     Indication: HEPATIC FUNCTION ABNORMAL
     Dosage: 100 MG, 3/D
     Route: 048
     Dates: start: 20091002
  11. WYPAX [Concomitant]
     Indication: ANXIETY
     Dosage: 0.5 MG, 2/D
     Route: 048
     Dates: start: 20091007

REACTIONS (3)
  - MALIGNANT NEOPLASM PROGRESSION [None]
  - NEOPLASM PROGRESSION [None]
  - PNEUMONITIS [None]
